FAERS Safety Report 8217572-1 (Version None)
Quarter: 2012Q1

REPORT INFORMATION
  Report Type: 
  Country: None (occurrence: None)
  Receive Date: 20120319
  Receipt Date: 20120319
  Transmission Date: 20120608
  Serious: Yes (Other)
  Sender: FDA-Public Use
  Company Number: None

PATIENT
  Age: 27 Year
  Sex: Female
  Weight: 89.811 kg

DRUGS (1)
  1. RISPERIDONE [Suspect]
     Indication: PSYCHOTIC DISORDER
     Dosage: 8 MG
     Route: 048
     Dates: start: 20111003, end: 20120222

REACTIONS (2)
  - AMENORRHOEA [None]
  - HYPERPROLACTINAEMIA [None]
